FAERS Safety Report 8196672-9 (Version None)
Quarter: 2012Q1

REPORT INFORMATION
  Report Type: 
  Country: None (occurrence: None)
  Receive Date: 20120309
  Receipt Date: 20110607
  Transmission Date: 20120608
  Serious: Yes (Death)
  Sender: FDA-Public Use
  Company Number: US-ACTELION-A-US2011-48037

PATIENT

DRUGS (5)
  1. TRACLEER [Suspect]
     Indication: PULMONARY ARTERIAL HYPERTENSION
     Dosage: UNK
     Route: 048
     Dates: start: 20100714, end: 20110408
  2. VENTAVIS [Suspect]
     Indication: PULMONARY ARTERIAL HYPERTENSION
     Dosage: UNK
     Route: 055
     Dates: start: 20081216
  3. CALCIUM CHANNEL BLOCKERS [Concomitant]
  4. TRACLEER [Suspect]
     Dosage: UNK
     Route: 048
     Dates: start: 20080310, end: 20100602
  5. REVATIO [Concomitant]

REACTIONS (1)
  - RESPIRATORY ARREST [None]
